FAERS Safety Report 21600606 (Version 5)
Quarter: 2023Q1

REPORT INFORMATION
  Report Type: Report from Study
  Country: US (occurrence: US)
  Receive Date: 20221116
  Receipt Date: 20230211
  Transmission Date: 20230417
  Serious: No
  Sender: FDA-Public Use
  Company Number: US-002147023-NVSC2022US257766

PATIENT
  Age: 77 Year
  Sex: Male

DRUGS (4)
  1. ENTRESTO [Suspect]
     Active Substance: SACUBITRIL\VALSARTAN
     Indication: Product used for unknown indication
     Dosage: UNK
     Route: 065
  2. ENTRESTO [Suspect]
     Active Substance: SACUBITRIL\VALSARTAN
     Dosage: UNK UNK, BID
     Route: 065
     Dates: start: 202211
  3. ENTRESTO [Suspect]
     Active Substance: SACUBITRIL\VALSARTAN
     Dosage: 2426 MG, BID (24/26MG TWICE A DAY)
     Route: 065
     Dates: start: 20221109
  4. ENTRESTO [Suspect]
     Active Substance: SACUBITRIL\VALSARTAN
     Dosage: UNK, BID (24/26 MG)
     Route: 048
     Dates: start: 202211

REACTIONS (9)
  - Throat clearing [Unknown]
  - Lethargy [Unknown]
  - Peripheral swelling [Recovered/Resolved]
  - Weight fluctuation [Unknown]
  - Asthenia [Unknown]
  - Cough [Unknown]
  - Hypotension [Unknown]
  - Fatigue [Unknown]
  - Product dose omission issue [Unknown]

NARRATIVE: CASE EVENT DATE: 20221101
